FAERS Safety Report 6359814-3 (Version None)
Quarter: 2009Q3

REPORT INFORMATION
  Report Type: 
  Country: None (occurrence: None)
  Receive Date: 20090917
  Receipt Date: 20090914
  Transmission Date: 20100115
  Serious: Yes (Hospitalization)
  Sender: FDA-Public Use
  Company Number: A0807243A

PATIENT
  Age: 66 Year
  Sex: Female

DRUGS (14)
  1. ADVAIR HFA [Suspect]
     Indication: CHRONIC OBSTRUCTIVE PULMONARY DISEASE
     Route: 055
     Dates: start: 20020101, end: 20090101
  2. SEREVENT [Suspect]
     Dosage: 50MCG VARIABLE DOSE
     Route: 055
     Dates: start: 20090701
  3. NASONEX [Suspect]
     Indication: DRUG USE FOR UNKNOWN INDICATION
     Route: 045
  4. MAXAIR [Concomitant]
  5. ATROVENT [Concomitant]
  6. ALBUTEROL [Concomitant]
  7. CARDIZEM [Concomitant]
  8. BUMEX [Concomitant]
  9. AMBIEN CR [Concomitant]
  10. LIPITOR [Concomitant]
  11. CLONAZEPAM [Concomitant]
  12. HYDROXYZINE [Concomitant]
  13. POTASSIUM CHLORIDE [Concomitant]
  14. ASTELIN [Concomitant]

REACTIONS (7)
  - ANXIETY [None]
  - CANDIDIASIS [None]
  - DRUG INEFFECTIVE [None]
  - ORAL PAIN [None]
  - PNEUMONIA [None]
  - VASCULAR INJURY [None]
  - WEIGHT DECREASED [None]
